FAERS Safety Report 4689231-3 (Version None)
Quarter: 2005Q2

REPORT INFORMATION
  Report Type: 
  Country: None (occurrence: None)
  Receive Date: 20050608
  Receipt Date: 20050201
  Transmission Date: 20051028
  Serious: No
  Sender: FDA-Public Use
  Company Number: 2005-BP-01010BP

PATIENT
  Age: 76 Year
  Sex: Female

DRUGS (8)
  1. SPIRIVA [Suspect]
     Indication: CHRONIC OBSTRUCTIVE PULMONARY DISEASE
     Dosage: 18 MCG (18 MCG), IH
     Route: 055
     Dates: start: 20041202
  2. SPIRIVA [Suspect]
     Indication: EMPHYSEMA
     Dosage: 18 MCG (18 MCG), IH
     Route: 055
     Dates: start: 20041202
  3. SPIRIVA [Suspect]
     Indication: CHRONIC OBSTRUCTIVE PULMONARY DISEASE
     Dosage: 18 MCG (18 MCG), IH
     Route: 055
     Dates: start: 20041202
  4. SPIRIVA [Suspect]
     Indication: EMPHYSEMA
     Dosage: 18 MCG (18 MCG), IH
     Route: 055
     Dates: start: 20041202
  5. FLOVENT [Concomitant]
  6. COMBIVENT (COMBIVENT /GFR/) [Concomitant]
  7. IPRATROPIUM BROMIDE [Concomitant]
  8. ALBUTEROL [Concomitant]

REACTIONS (3)
  - CONSTIPATION [None]
  - DRY MOUTH [None]
  - FLATULENCE [None]
